FAERS Safety Report 12139902 (Version 1)
Quarter: 2016Q1

REPORT INFORMATION
  Report Type: Spontaneous
  Country: US (occurrence: None)
  Receive Date: 20160302
  Receipt Date: 20160302
  Transmission Date: 20160526
  Serious: Yes (Hospitalization)
  Sender: FDA-Public Use
  Company Number: None

PATIENT
  Age: 65 Year
  Sex: Female

DRUGS (8)
  1. VITAMIN E [Concomitant]
     Active Substance: .ALPHA.-TOCOPHEROL
  2. MYRBETRIQ [Concomitant]
     Active Substance: MIRABEGRON
  3. LISINIPRIL [Concomitant]
  4. ANTIBIOTIC [Concomitant]
     Active Substance: UNSPECIFIED INGREDIENT
  5. VAGIFEM [Concomitant]
     Active Substance: ESTRADIOL
  6. AMPYRA [Concomitant]
     Active Substance: DALFAMPRIDINE
  7. SYNTHROID [Concomitant]
     Active Substance: LEVOTHYROXINE SODIUM
  8. BIOTIN 100MG RELIABLE COMPOUNDING PHARMACY [Suspect]
     Active Substance: BIOTIN
     Indication: MULTIPLE SCLEROSIS
     Dosage: 3 PILLS ONCE DAILY TAKEN BY MOUTH
     Route: 048
     Dates: start: 20160221, end: 20160223

REACTIONS (7)
  - Memory impairment [None]
  - Product quality issue [None]
  - Immobile [None]
  - Speech disorder [None]
  - Thinking abnormal [None]
  - Mental disorder [None]
  - Hyperventilation [None]

NARRATIVE: CASE EVENT DATE: 20160221
